FAERS Safety Report 9201551 (Version 1)
Quarter: 2013Q2

REPORT INFORMATION
  Report Type: Spontaneous
  Country: US (occurrence: US)
  Receive Date: 20130401
  Receipt Date: 20130401
  Transmission Date: 20140414
  Serious: Yes (Other)
  Sender: FDA-Public Use
  Company Number: US-BAYER-2013-037413

PATIENT
  Age: 52 Year
  Sex: Female
  Weight: 63.49 kg

DRUGS (9)
  1. YASMIN [Suspect]
     Indication: CONTRACEPTION
     Dosage: UNK
  2. LEXAPRO [Concomitant]
     Dosage: 20 MG, UNK
     Route: 048
     Dates: start: 20060927, end: 20080401
  3. SKELAXIN [Concomitant]
     Dosage: 800 MG, UNK
     Route: 048
     Dates: start: 20080407
  4. ALEVE [Concomitant]
  5. ADVAIR [Concomitant]
  6. NASONEX [Concomitant]
  7. SPRINTEC [Concomitant]
  8. ASTELIN [Concomitant]
  9. SINGULAIR [Concomitant]

REACTIONS (1)
  - Thrombophlebitis superficial [Recovering/Resolving]
